FAERS Safety Report 23446519 (Version 1)
Quarter: 2024Q1

REPORT INFORMATION
  Report Type: Spontaneous
  Country: CN (occurrence: CN)
  Receive Date: 20240126
  Receipt Date: 20240126
  Transmission Date: 20240410
  Serious: Yes (Hospitalization)
  Sender: FDA-Public Use
  Company Number: CN-FreseniusKabi-FK202401040

PATIENT
  Age: 51 Year
  Sex: Female
  Weight: 76 kg

DRUGS (9)
  1. PROPOFOL [Suspect]
     Active Substance: PROPOFOL
     Indication: General anaesthesia
     Dosage: FORM OF ADMIN: INJECTION
     Route: 042
     Dates: start: 20240104, end: 20240104
  2. SUFENTANIL CITRATE [Suspect]
     Active Substance: SUFENTANIL CITRATE
     Indication: General anaesthesia
     Route: 042
     Dates: start: 20240104, end: 20240104
  3. REMIFENTANIL HYDROCHLORIDE [Suspect]
     Active Substance: REMIFENTANIL HYDROCHLORIDE
     Indication: General anaesthesia
     Route: 042
     Dates: start: 20240104, end: 20240104
  4. ETOMIDATE [Concomitant]
     Active Substance: ETOMIDATE
     Indication: General anaesthesia
     Route: 042
     Dates: start: 20240104, end: 20240104
  5. SEVOFLURANE [Concomitant]
     Active Substance: SEVOFLURANE
     Indication: General anaesthesia
     Route: 055
     Dates: start: 20240104, end: 20240104
  6. MIDAZOLAM HYDROCHLORIDE [Concomitant]
     Active Substance: MIDAZOLAM HYDROCHLORIDE
     Indication: General anaesthesia
     Route: 042
     Dates: start: 20240104, end: 20240104
  7. DEZOCINE [Concomitant]
     Active Substance: DEZOCINE
     Indication: General anaesthesia
     Route: 042
     Dates: start: 20240104, end: 20240104
  8. ROCURONIUM BROMIDE [Concomitant]
     Active Substance: ROCURONIUM BROMIDE
     Indication: General anaesthesia
     Route: 042
     Dates: start: 20240104, end: 20240104
  9. CISATRACURIUM BESYLATE [Concomitant]
     Active Substance: CISATRACURIUM BESYLATE
     Indication: General anaesthesia
     Route: 042
     Dates: start: 20240104, end: 20240104

REACTIONS (1)
  - Anaphylactic shock [Recovering/Resolving]

NARRATIVE: CASE EVENT DATE: 20240104
